FAERS Safety Report 5016978-1 (Version None)
Quarter: 2006Q2

REPORT INFORMATION
  Report Type: 
  Country: None (occurrence: None)
  Receive Date: 20060602
  Receipt Date: 20060214
  Transmission Date: 20061013
  Serious: Yes (Life-Threatening, Hospitalization, Other)
  Sender: FDA-Public Use
  Company Number: US-GILEAD-2006-0009228

PATIENT
  Sex: Female
  Weight: 68.1 kg

DRUGS (16)
  1. VIREAD [Suspect]
     Indication: HIV INFECTION
     Route: 048
     Dates: start: 20050519, end: 20050801
  2. VIREAD [Suspect]
     Route: 048
     Dates: start: 20020619, end: 20040923
  3. DIDANOSINE [Suspect]
     Indication: HIV INFECTION
  4. DIDANOSINE [Suspect]
  5. SUSTIVA [Concomitant]
     Indication: HIV INFECTION
     Route: 048
     Dates: start: 20040619
  6. KALETRA [Concomitant]
     Indication: HIV INFECTION
     Route: 048
     Dates: start: 20031225
  7. ZYPREXA [Concomitant]
     Indication: DEPRESSION
     Route: 048
     Dates: start: 20030101
  8. ZYPREXA [Concomitant]
     Indication: SLEEP DISORDER THERAPY
  9. EFFEXOR XR [Concomitant]
     Indication: DEPRESSION
     Route: 048
     Dates: start: 20020101
  10. REMERON [Concomitant]
     Indication: DEPRESSION
     Route: 048
     Dates: start: 20030101
  11. CLONAZEPAM [Concomitant]
     Indication: SLEEP DISORDER THERAPY
     Route: 048
     Dates: start: 20020101
  12. CLONAZEPAM [Concomitant]
     Indication: ANXIETY
  13. TRAZODONE HCL [Concomitant]
     Indication: DEPRESSION
     Route: 048
     Dates: start: 19970101
  14. PROTONIX [Concomitant]
     Indication: NAUSEA
     Route: 048
     Dates: start: 20040101
  15. MS CONTIN [Concomitant]
     Indication: PAIN
     Route: 048
     Dates: start: 19840101
  16. PERCOCET [Concomitant]
     Indication: PAIN
     Route: 048
     Dates: start: 19840101

REACTIONS (6)
  - BLOOD CREATININE INCREASED [None]
  - FANCONI SYNDROME ACQUIRED [None]
  - FEMORAL NECK FRACTURE [None]
  - IMPAIRED HEALING [None]
  - OSTEOPENIA [None]
  - PANCREATITIS [None]
